FAERS Safety Report 6700049-X (Version None)
Quarter: 2010Q2

REPORT INFORMATION
  Report Type: 
  Country: None (occurrence: None)
  Receive Date: 20100428
  Receipt Date: 20100421
  Transmission Date: 20101027
  Serious: Yes (Other)
  Sender: FDA-Public Use
  Company Number: JP-SANOFI-AVENTIS-2009SA005273

PATIENT
  Age: 80 Year
  Sex: Male
  Weight: 55.6 kg

DRUGS (12)
  1. BLINDED THERAPY [Suspect]
     Route: 048
     Dates: start: 20090512, end: 20090803
  2. BLINDED THERAPY [Suspect]
     Route: 048
     Dates: start: 20090512, end: 20090803
  3. CLOPIDOGREL BISULFATE [Suspect]
     Route: 048
     Dates: start: 20090804, end: 20091221
  4. CLOPIDOGREL BISULFATE [Suspect]
     Route: 048
     Dates: start: 20090804, end: 20091221
  5. ASPIRIN [Suspect]
     Indication: THROMBOSIS PROPHYLAXIS
     Route: 048
     Dates: start: 20090414
  6. HERBESSER - SLOW RELEASE [Concomitant]
     Route: 048
     Dates: start: 20090414
  7. OLMESARTAN MEDOXOMIL [Concomitant]
     Route: 048
     Dates: start: 20090813
  8. MAGNESIUM OXIDE [Concomitant]
     Route: 048
     Dates: start: 20090414
  9. BIOFERMIN [Concomitant]
     Route: 048
     Dates: start: 20090414
  10. SENNOSIDE A [Concomitant]
     Route: 048
     Dates: start: 20091125
  11. DIGOSIN [Concomitant]
     Route: 048
     Dates: start: 20091126
  12. ALL OTHER THERAPEUTIC PRODUCTS [Concomitant]
     Route: 048
     Dates: start: 20090901

REACTIONS (1)
  - GASTRIC ULCER [None]
